FAERS Safety Report 8163955-8 (Version None)
Quarter: 2012Q1

REPORT INFORMATION
  Report Type: 
  Country: None (occurrence: None)
  Receive Date: 20120103
  Receipt Date: 20111003
  Transmission Date: 20120608
  Serious: No
  Sender: FDA-Public Use
  Company Number: AE-2011-001985

PATIENT
  Age: 63 Year
  Sex: Female

DRUGS (10)
  1. PEGASYS [Concomitant]
  2. VITAMIN STROVITE (VITAMINS) [Concomitant]
  3. JANUVIA [Concomitant]
  4. RIBAVIRIN [Concomitant]
  5. INCIVEK (TELAPREVIR) [Suspect]
     Dosage: 2250 MG (750 MG, 3 IN 1 D), ORAL
     Route: 048
     Dates: start: 20110930
  6. SYNTHROID [Concomitant]
  7. NORVASC [Concomitant]
  8. HUMALOG 25/75 (HUMALOG MIX 25) [Concomitant]
  9. COZAAR [Concomitant]
  10. FUROSEMIDE [Concomitant]

REACTIONS (2)
  - RASH GENERALISED [None]
  - DIZZINESS [None]
